FAERS Safety Report 6219002-8 (Version None)
Quarter: 2009Q2

REPORT INFORMATION
  Report Type: 
  Country: None (occurrence: None)
  Receive Date: 20090608
  Receipt Date: 20090529
  Transmission Date: 20091009
  Serious: Yes (Death, Hospitalization, Other)
  Sender: FDA-Public Use
  Company Number: DE-ABBOTT-09P-062-0566153-00

PATIENT
  Sex: Male
  Weight: 81 kg

DRUGS (15)
  1. HUMIRA [Suspect]
     Indication: POLYARTHRITIS
     Route: 058
     Dates: start: 20080507, end: 20090222
  2. ARAVA [Concomitant]
     Indication: POLYARTHRITIS
     Dates: start: 20070601, end: 20090222
  3. NSAID [Concomitant]
     Indication: POLYARTHRITIS
  4. GLUCOCORTICOIDS [Concomitant]
     Indication: POLYARTHRITIS
  5. TRAMADOL HCL [Concomitant]
     Indication: DRUG USE FOR UNKNOWN INDICATION
     Dosage: 1-0-0
  6. BISOPROLOL [Concomitant]
     Indication: DRUG USE FOR UNKNOWN INDICATION
     Dosage: 1/2 - 0- 0
  7. CALCIFEROL [Concomitant]
     Indication: DRUG USE FOR UNKNOWN INDICATION
     Dosage: 1-0-0
  8. PANTOZOL [Concomitant]
     Indication: DRUG USE FOR UNKNOWN INDICATION
     Dosage: 1-0-0
  9. ARTHROTEC [Concomitant]
     Indication: DRUG USE FOR UNKNOWN INDICATION
     Dosage: 0-1-0
  10. ALLOPURINOL [Concomitant]
     Indication: DRUG USE FOR UNKNOWN INDICATION
     Dosage: 0-1/2-0
  11. FUROSEMID [Concomitant]
     Indication: DRUG USE FOR UNKNOWN INDICATION
     Dosage: 1-0-0
  12. L-THYROXIN [Concomitant]
     Indication: DRUG USE FOR UNKNOWN INDICATION
     Dosage: 1-0-0
  13. KALINOR-BRAUSETABLETTEN [Concomitant]
     Indication: DRUG USE FOR UNKNOWN INDICATION
     Dosage: 1-1-1
  14. NOVALGIN [Concomitant]
     Indication: ANALGESIA
     Dosage: 1-1-1
  15. PARACETAMOL [Concomitant]
     Indication: ANALGESIA

REACTIONS (8)
  - CARDIAC FAILURE [None]
  - DEHYDRATION [None]
  - DISORIENTATION [None]
  - DYSPNOEA [None]
  - PLEURAL EFFUSION [None]
  - PNEUMONIA [None]
  - PYREXIA [None]
  - UNRESPONSIVE TO STIMULI [None]
